FAERS Safety Report 4908293-9 (Version None)
Quarter: 2006Q1

REPORT INFORMATION
  Report Type: 
  Country: None (occurrence: None)
  Receive Date: 20060210
  Receipt Date: 20060131
  Transmission Date: 20060701
  Serious: Yes (Other)
  Sender: FDA-Public Use
  Company Number: BE-JNJFOC-20060105610

PATIENT
  Age: 50 Year
  Sex: Female

DRUGS (3)
  1. CONTRAMAL [Suspect]
     Indication: DYSMENORRHOEA
     Route: 048
  2. LORMETAZEPAM [Suspect]
     Indication: DRUG USE FOR UNKNOWN INDICATION
     Route: 065
  3. ANTABUSE [Concomitant]

REACTIONS (2)
  - AGGRESSION [None]
  - DRUG DEPENDENCE [None]
